FAERS Safety Report 24111651 (Version 1)
Quarter: 2024Q3

REPORT INFORMATION
  Report Type: Report from Study
  Country: US (occurrence: US)
  Receive Date: 20240718
  Receipt Date: 20240718
  Transmission Date: 20241016
  Serious: Yes (Other)
  Sender: BAYER
  Company Number: US-BAYER-2024A095090

PATIENT
  Age: 42 Year
  Sex: Female

DRUGS (7)
  1. STIVARGA [Suspect]
     Active Substance: REGORAFENIB MONOHYDRATE
     Indication: Colon cancer
     Dosage: 80 MG, QD(TAKE 2 TABLETS (80 MG) BY MOUTH EVERY DAY WITH BREAKFAST X 7 DAYS, THEN 3 TABLETS (120 MG)
     Route: 048
     Dates: start: 20240627, end: 20240705
  2. OMEPRAZOLE [Concomitant]
     Active Substance: OMEPRAZOLE
     Dosage: UNK
  3. IRON [Concomitant]
     Active Substance: IRON
     Dosage: UNK
  4. LISINOPRIL [Concomitant]
     Active Substance: LISINOPRIL
     Dosage: UNK
  5. HYDROCHLOROTHIAZIDE [Concomitant]
     Active Substance: HYDROCHLOROTHIAZIDE
     Dosage: UNK
  6. AMLODIPINE BESYLATE [Concomitant]
     Active Substance: AMLODIPINE BESYLATE
     Dosage: UNK
  7. GABAPENTIN [Concomitant]
     Active Substance: GABAPENTIN
     Dosage: UNK

REACTIONS (13)
  - Inflammation [Recovering/Resolving]
  - Gait inability [Recovering/Resolving]
  - Skin irritation [Not Recovered/Not Resolved]
  - Blood pressure increased [Recovering/Resolving]
  - Off label use [None]
  - Gait disturbance [Not Recovered/Not Resolved]
  - Productive cough [Not Recovered/Not Resolved]
  - Neuralgia [Recovering/Resolving]
  - Abdominal pain upper [Recovering/Resolving]
  - Renal pain [Recovering/Resolving]
  - Oropharyngeal pain [Recovering/Resolving]
  - Dry mouth [Recovering/Resolving]
  - Decreased appetite [Not Recovered/Not Resolved]
